FAERS Safety Report 25320833 (Version 1)
Quarter: 2025Q2

REPORT INFORMATION
  Report Type: Spontaneous
  Country: US (occurrence: US)
  Receive Date: 20250515
  Receipt Date: 20250515
  Transmission Date: 20250717
  Serious: No
  Sender: SANOFI AVENTIS
  Company Number: US-SA-2025SA137989

PATIENT
  Sex: Male
  Weight: 75 kg

DRUGS (1)
  1. DUPIXENT [Suspect]
     Active Substance: DUPILUMAB
     Route: 058

REACTIONS (4)
  - Scab [Unknown]
  - Scratch [Unknown]
  - Pruritus [Unknown]
  - Rash [Unknown]
